FAERS Safety Report 6019559-6 (Version None)
Quarter: 2008Q4

REPORT INFORMATION
  Report Type: 
  Country: None (occurrence: None)
  Receive Date: 20081224
  Receipt Date: 20081215
  Transmission Date: 20090506
  Serious: Yes (Other)
  Sender: FDA-Public Use
  Company Number: PHHY2008JP30276

PATIENT
  Sex: Male

DRUGS (5)
  1. LAMISIL [Suspect]
     Dosage: 125 MG/DAY
     Route: 048
     Dates: start: 20080624, end: 20080722
  2. ALLELOCK [Concomitant]
     Indication: ECZEMA
     Dosage: 5 MG UNK
     Route: 048
     Dates: start: 20070827
  3. MELBIN [Concomitant]
     Route: 048
  4. STARSIS [Concomitant]
     Route: 048
  5. DEPAS [Concomitant]
     Route: 048

REACTIONS (9)
  - ALANINE AMINOTRANSFERASE INCREASED [None]
  - ANOREXIA [None]
  - ASPARTATE AMINOTRANSFERASE INCREASED [None]
  - GAMMA-GLUTAMYLTRANSFERASE INCREASED [None]
  - HEPATIC FUNCTION ABNORMAL [None]
  - MALAISE [None]
  - NASOPHARYNGITIS [None]
  - PYREXIA [None]
  - WEIGHT DECREASED [None]
